FAERS Safety Report 8469462-7 (Version None)
Quarter: 2012Q2

REPORT INFORMATION
  Report Type: 
  Country: None (occurrence: None)
  Receive Date: 20120626
  Receipt Date: 20120613
  Transmission Date: 20120825
  Serious: Yes (Life-Threatening, Hospitalization)
  Sender: FDA-Public Use
  Company Number: US-BAXTER-2012BAX008508

PATIENT
  Sex: Female
  Weight: 119.4 kg

DRUGS (26)
  1. FUROSEMIDE [Concomitant]
  2. OMEPRAZOLE [Concomitant]
  3. TRAMADOL HCL [Concomitant]
  4. COUMADIN [Concomitant]
  5. EPINEPHRINE [Concomitant]
  6. CLOTRIMAZOLE [Concomitant]
     Route: 061
  7. PERCOCET [Concomitant]
     Dosage: 5/325MG; 1-2 TABLETS
  8. IMITREX [Concomitant]
     Indication: MIGRAINE
  9. AMBIEN [Concomitant]
  10. COUMADIN [Concomitant]
  11. GABAPENTIN [Concomitant]
     Dosage: 2 TABLETS
  12. LORATADINE [Concomitant]
  13. GAMMAGARD LIQUID [Suspect]
     Route: 042
     Dates: start: 20120429, end: 20120429
  14. ABILIFY [Concomitant]
  15. DIPHENHYDRAMINE HCL [Concomitant]
  16. FLUTICASONE [Concomitant]
     Dosage: 2 SPRAYS IN EACH NOSTRIL
     Route: 045
  17. POTASSIUM CHLORIDE [Concomitant]
  18. KLONOPIN [Concomitant]
  19. COUMADIN [Concomitant]
  20. LYRICA [Concomitant]
  21. SUDAFED 12 HOUR [Concomitant]
     Dosage: 1-2 TABLETS
  22. GAMMAGARD LIQUID [Suspect]
     Route: 042
     Dates: start: 20060901
  23. LOVASTATIN [Concomitant]
  24. SINGULAIR [Concomitant]
  25. ALBUTEROL [Concomitant]
     Dosage: 2 PUFFS
  26. COZAAR [Concomitant]

REACTIONS (10)
  - BRONCHITIS [None]
  - BRONCHOSPASM [None]
  - NAUSEA [None]
  - SEPSIS [None]
  - DEHYDRATION [None]
  - HYPOXIA [None]
  - PYELONEPHRITIS [None]
  - CHILLS [None]
  - PYREXIA [None]
  - FLANK PAIN [None]
